FAERS Safety Report 10154053 (Version 1)
Quarter: 2014Q2

REPORT INFORMATION
  Report Type: Spontaneous
  Country: US (occurrence: None)
  Receive Date: 20140502
  Receipt Date: 20140502
  Transmission Date: 20141212
  Serious: Yes (Hospitalization)
  Sender: FDA-Public Use
  Company Number: UTC-047602

PATIENT
  Age: 61 Year
  Sex: Male
  Weight: 63.5 kg

DRUGS (3)
  1. TYVASO (0.6 MILLIGRAM/MILLILITERS, AEROSOL FOR INHALATION) (TREPROSTINIL SODIUM) [Suspect]
     Indication: PULMONARY ARTERIAL HYPERTENSION
     Route: 055
     Dates: start: 20130724
  2. TRACLEER (BOSENTAN) [Concomitant]
  3. REVATIO (SILDENAFIL CITRATE) [Concomitant]

REACTIONS (2)
  - Pulmonary arterial hypertension [None]
  - Condition aggravated [None]
